FAERS Safety Report 4446725-3 (Version None)
Quarter: 2004Q3

REPORT INFORMATION
  Report Type: 
  Country: None (occurrence: None)
  Receive Date: 20040910
  Receipt Date: 20040826
  Transmission Date: 20050211
  Serious: Yes (Other)
  Sender: FDA-Public Use
  Company Number: 2004059999

PATIENT
  Sex: Female

DRUGS (1)
  1. LUSTRAL (SERTRALINE) [Suspect]
     Indication: ILL-DEFINED DISORDER
     Dosage: 150 MG (150 MG, 1 IN 1 D), ORAL
     Route: 048

REACTIONS (1)
  - HYPERKALAEMIA [None]
